FAERS Safety Report 6484844-0 (Version None)
Quarter: 2009Q4

REPORT INFORMATION
  Report Type: 
  Country: None (occurrence: None)
  Receive Date: 20091203
  Receipt Date: 20091118
  Transmission Date: 20100525
  Serious: Yes (Disabling)
  Sender: FDA-Public Use
  Company Number: 2009JP006889

PATIENT
  Age: 60 Year
  Sex: Male
  Weight: 95.5 kg

DRUGS (1)
  1. TACROLIMUS [Suspect]
     Indication: LIVER TRANSPLANT
     Dosage: 22 MG

REACTIONS (4)
  - DRUG LEVEL DECREASED [None]
  - DRUG TOXICITY [None]
  - HEADACHE [None]
  - TREMOR [None]
